FAERS Safety Report 21616521 (Version 1)
Quarter: 2022Q4

REPORT INFORMATION
  Report Type: Spontaneous
  Country: US (occurrence: US)
  Receive Date: 20221118
  Receipt Date: 20221118
  Transmission Date: 20230113
  Serious: No
  Sender: FDA-Public Use
  Company Number: US-ABBVIE-4157910

PATIENT
  Sex: Female

DRUGS (1)
  1. HUMIRA [Suspect]
     Active Substance: ADALIMUMAB
     Indication: Product used for unknown indication
     Dosage: FORM STRENGTH: 40MG?START DATE TEXT: 10 YEARS AGO
     Route: 058
     Dates: start: 2011

REACTIONS (2)
  - Therapeutic product effect decreased [Unknown]
  - Device issue [Not Recovered/Not Resolved]
